FAERS Safety Report 7177340-9 (Version None)
Quarter: 2010Q4

REPORT INFORMATION
  Report Type: 
  Country: None (occurrence: None)
  Receive Date: 20101220
  Receipt Date: 20101213
  Transmission Date: 20110411
  Serious: Yes (Hospitalization, Other)
  Sender: FDA-Public Use
  Company Number: IE-SANOFI-AVENTIS-2010SA075614

PATIENT
  Age: 74 Year
  Sex: Male

DRUGS (12)
  1. MULTAQ [Suspect]
     Indication: ATRIAL FLUTTER
     Route: 048
     Dates: start: 20101004
  2. CAMCOLIT [Concomitant]
     Route: 048
     Dates: start: 20101006
  3. CAMCOLIT [Concomitant]
     Route: 048
  4. EFFEXOR XR [Concomitant]
     Route: 048
     Dates: start: 20101001
  5. ZYPREXA [Concomitant]
     Route: 048
  6. MICARDIS [Concomitant]
     Route: 048
     Dates: start: 20100929
  7. BISOPROLOL [Concomitant]
     Route: 048
     Dates: start: 20100930
  8. WARFARIN SODIUM [Concomitant]
     Indication: ATRIAL FLUTTER
     Route: 048
     Dates: start: 20100926
  9. PROTIUM [Concomitant]
     Route: 048
  10. BUMEX [Concomitant]
     Route: 048
  11. MIRTAZAPINE [Concomitant]
     Route: 048
  12. ZIMOVANE [Concomitant]
     Route: 048

REACTIONS (1)
  - ATRIAL FLUTTER [None]
